FAERS Safety Report 8822087 (Version 1)
Quarter: 2012Q4

REPORT INFORMATION
  Report Type: 
  Country: MY (occurrence: MY)
  Receive Date: 20121003
  Receipt Date: 20121003
  Transmission Date: 20130627
  Serious: Yes (Other)
  Sender: FDA-Public Use
  Company Number: MY-VALEANT-2012VX004343

PATIENT
  Age: 16 Year
  Sex: Female

DRUGS (2)
  1. CUPRIMINE [Suspect]
     Indication: WILSON^S DISEASE
     Route: 065
  2. CUPRIMINE [Suspect]
     Indication: WILSON^S DISEASE
     Route: 065

REACTIONS (13)
  - Galactorrhoea [Recovered/Resolved]
  - Hypothalamo-pituitary disorder [Recovered/Resolved]
  - Breast hyperplasia [Recovered/Resolved]
  - Fibroadenoma of breast [Recovered/Resolved]
  - Hirsutism [Recovered/Resolved]
  - Peau d^orange [Recovered/Resolved]
  - Erythema [Recovered/Resolved]
  - Skin hyperpigmentation [Recovered/Resolved]
  - Skin atrophy [Recovered/Resolved]
  - Rash papular [Recovered/Resolved]
  - Myasthenia gravis [Recovered/Resolved]
  - Skin disorder [Recovered/Resolved]
  - Hyperprolactinaemia [Recovered/Resolved]
